FAERS Safety Report 10483863 (Version 1)
Quarter: 2014Q3

REPORT INFORMATION
  Report Type: Report from Study
  Country: US (occurrence: US)
  Receive Date: 20140930
  Receipt Date: 20140930
  Transmission Date: 20150326
  Serious: No
  Sender: FDA-Public Use
  Company Number: US-ALEXION-A201305723

PATIENT

DRUGS (1)
  1. SOLIRIS [Suspect]
     Active Substance: ECULIZUMAB
     Indication: PAROXYSMAL NOCTURNAL HAEMOGLOBINURIA

REACTIONS (5)
  - Abdominal pain [Unknown]
  - Dyspnoea [Unknown]
  - Quality of life decreased [Unknown]
  - Haemoglobinuria [Unknown]
  - Fatigue [Unknown]
